FAERS Safety Report 7269637-9 (Version None)
Quarter: 2011Q1

REPORT INFORMATION
  Report Type: 
  Country: None (occurrence: None)
  Receive Date: 20110124
  Receipt Date: 20110103
  Transmission Date: 20110831
  Serious: No
  Sender: FDA-Public Use
  Company Number: 2011-00001

PATIENT
  Sex: Male

DRUGS (1)
  1. ZICAM EXTREME CONGESTION RELIEF [Suspect]
     Dosage: USED ONCE
     Dates: start: 20101215, end: 20101215

REACTIONS (2)
  - ANOSMIA [None]
  - AGEUSIA [None]
